FAERS Safety Report 10424365 (Version 1)
Quarter: 2014Q3

REPORT INFORMATION
  Report Type: Spontaneous
  Country: US (occurrence: US)
  Receive Date: 20140902
  Receipt Date: 20140902
  Transmission Date: 20150326
  Serious: Yes (Hospitalization)
  Sender: FDA-Public Use
  Company Number: US-BRISTOL-MYERS SQUIBB COMPANY-21329834

PATIENT
  Age: 61 Year
  Sex: Male
  Weight: 117.91 kg

DRUGS (1)
  1. BYDUREON [Suspect]
     Active Substance: EXENATIDE
     Dosage: INJECTION ?ONGOING ?DURATION: 5-6 MONTHS
     Route: 058
     Dates: start: 2014

REACTIONS (3)
  - Accidental exposure to product [Unknown]
  - Stent placement [Unknown]
  - Product quality issue [Unknown]

NARRATIVE: CASE EVENT DATE: 201408
